FAERS Safety Report 7988268-6 (Version None)
Quarter: 2011Q4

REPORT INFORMATION
  Report Type: 
  Country: None (occurrence: None)
  Receive Date: 20111216
  Receipt Date: 20110124
  Transmission Date: 20120403
  Serious: No
  Sender: FDA-Public Use
  Company Number: US-ABBOTT-11P-163-0804043-00

PATIENT
  Sex: Female
  Weight: 66.363 kg

DRUGS (1)
  1. PROGESTERONE [Suspect]
     Indication: PROGESTERONE DECREASED
     Dosage: DAILY DOSE: 200 MILLIGRAM(S)
     Route: 048
     Dates: start: 20110110

REACTIONS (1)
  - ABDOMINAL PAIN UPPER [None]
